FAERS Safety Report 6700604-7 (Version None)
Quarter: 2010Q2

REPORT INFORMATION
  Report Type: 
  Country: None (occurrence: None)
  Receive Date: 20100426
  Receipt Date: 20100412
  Transmission Date: 20101027
  Serious: Yes (Other)
  Sender: FDA-Public Use
  Company Number: RENA-1000549

PATIENT
  Age: 40 Year
  Sex: Female
  Weight: 58 kg

DRUGS (10)
  1. RENAGEL [Suspect]
     Indication: HYPERPHOSPHATAEMIA
     Dosage: 1.6 G, TID, ORAL; 0.8G TID
     Route: 048
     Dates: start: 20090629
  2. RENAGEL [Suspect]
     Indication: HYPERPHOSPHATAEMIA
     Dosage: 1.6 G, TID, ORAL; 0.8G TID
     Route: 048
     Dates: start: 20090901
  3. ENALAPRIL MALEATE [Suspect]
     Indication: HYPERTENSION
     Dosage: 20 MG, BID
     Dates: end: 20090101
  4. CAPTOPRIL [Concomitant]
  5. ROCALTROL [Concomitant]
  6. TITRALAC (AMINOACETIC ACID, CALCIUM CARBONATE) [Concomitant]
  7. ERITROPOYETINA [Concomitant]
  8. BENUTREX (ASCORBIC ACID, CALCIUM PANTOTHENATE, CYANOCOBALAMIN, NICOTIN [Concomitant]
  9. ACIDO FOLICO (FOLIC ACID) [Concomitant]
  10. AMLODIPINE (AMLODIPINE MESILATE) [Concomitant]

REACTIONS (3)
  - DRUG EXPOSURE DURING PREGNANCY [None]
  - OLIGOHYDRAMNIOS [None]
  - PREMATURE LABOUR [None]
